FAERS Safety Report 12272089 (Version 1)
Quarter: 2016Q2

REPORT INFORMATION
  Report Type: Spontaneous
  Country: US (occurrence: US)
  Receive Date: 20160415
  Receipt Date: 20160415
  Transmission Date: 20160815
  Serious: No
  Sender: FDA-Public Use
  Company Number: US-FERRINGPH-2015FE04858

PATIENT
  Age: 71 Year
  Sex: Male
  Weight: 72.56 kg

DRUGS (3)
  1. PROLIA [Concomitant]
     Active Substance: DENOSUMAB
  2. CALCIUM [Concomitant]
     Active Substance: CALCIUM
  3. FIRMAGON [Suspect]
     Active Substance: DEGARELIX ACETATE
     Indication: PROSTATE CANCER
     Dosage: UNK,
     Route: 058
     Dates: start: 20151112

REACTIONS (6)
  - Hot flush [Not Recovered/Not Resolved]
  - Injection site pain [Recovered/Resolved]
  - Heart rate irregular [Recovered/Resolved]
  - Heart rate increased [Recovered/Resolved]
  - Hypocalcaemia [Unknown]
  - Blood pressure increased [Unknown]

NARRATIVE: CASE EVENT DATE: 20151112
